FAERS Safety Report 9943903 (Version 1)
Quarter: 2014Q1

REPORT INFORMATION
  Report Type: Spontaneous
  Country: US (occurrence: US)
  Receive Date: 20140303
  Receipt Date: 20140303
  Transmission Date: 20141002
  Serious: Yes (Hospitalization, Other)
  Sender: FDA-Public Use
  Company Number: US-ELI_LILLY_AND_COMPANY-US201402008723

PATIENT
  Sex: Female

DRUGS (3)
  1. INSULIN HUMAN [Suspect]
     Indication: TYPE 2 DIABETES MELLITUS
     Dosage: UNK
     Route: 065
     Dates: start: 2000
  2. INSULIN HUMAN [Suspect]
     Route: 065
  3. TERBUTALINE [Concomitant]
     Indication: PREMATURE LABOUR

REACTIONS (5)
  - Amniorrhoea [Unknown]
  - Maternal exposure during pregnancy [Recovered/Resolved]
  - Injection site bruising [Unknown]
  - Uterine haemorrhage [Unknown]
  - Premature labour [Unknown]
